FAERS Safety Report 5282004-2 (Version None)
Quarter: 2007Q1

REPORT INFORMATION
  Report Type: 
  Country: None (occurrence: None)
  Receive Date: 20061218
  Receipt Date: 20060414
  Transmission Date: 20070707
  Serious: Yes (Other)
  Sender: FDA-Public Use
  Company Number: US_000133685

PATIENT
  Age: 39 Year
  Sex: Male
  Weight: 59.1 kg

DRUGS (4)
  1. HUMULIN 50/50 [Suspect]
     Indication: DIABETES MELLITUS
     Dosage: 50 U, DAILY (1/D)
     Dates: start: 19980101
  2. HUMULIN R [Suspect]
     Indication: DIABETES MELLITUS
     Dosage: SUBCUTANEOUS
     Route: 058
  3. HUMULIN N [Suspect]
     Indication: DIABETES MELLITUS
     Dosage: SUBCUTANEOUS
     Route: 058
  4. ILETIN [Suspect]
     Indication: DIABETES MELLITUS
     Dates: start: 19790101, end: 19970101

REACTIONS (10)
  - APPETITE DISORDER [None]
  - BLOOD GLUCOSE DECREASED [None]
  - BLOOD GLUCOSE INCREASED [None]
  - HYPOGLYCAEMIA [None]
  - HYPOGLYCAEMIC SEIZURE [None]
  - JOINT DISLOCATION [None]
  - MYALGIA [None]
  - SOMNOLENCE [None]
  - TONGUE BITING [None]
  - UPPER LIMB FRACTURE [None]
